FAERS Safety Report 18941903 (Version 1)
Quarter: 2021Q1

REPORT INFORMATION
  Report Type: Spontaneous
  Country: CZ (occurrence: CZ)
  Receive Date: 20210225
  Receipt Date: 20210225
  Transmission Date: 20210420
  Serious: Yes (Life-Threatening, Hospitalization, Disabling, Other)
  Sender: FDA-Public Use
  Company Number: CZ-GILEAD-2021-0518615

PATIENT
  Age: 53 Year
  Sex: Male
  Weight: 69 kg

DRUGS (14)
  1. VIGANTOL [COLECALCIFEROL] [Concomitant]
     Active Substance: CHOLECALCIFEROL
  2. PERFALGAN [Concomitant]
     Active Substance: ACETAMINOPHEN
     Indication: PYREXIA
  3. CEFTAZIDIM [Concomitant]
     Active Substance: CEFTAZIDIME
     Indication: INFECTION
     Dosage: UNK
     Dates: start: 20210201
  4. DILURAN [Concomitant]
  5. ACIDUM ASCORBICUM [Concomitant]
  6. PANTOPRAZOL [PANTOPRAZOLE] [Concomitant]
     Active Substance: PANTOPRAZOLE
  7. NEUROL [ALPRAZOLAM] [Concomitant]
     Active Substance: ALPRAZOLAM
  8. ISOPRINOSINE [Concomitant]
     Active Substance: INOSINE PRANOBEX
  9. KLACID [CLARITHROMYCIN] [Concomitant]
     Active Substance: CLARITHROMYCIN
     Indication: INFECTION
     Dosage: UNK
     Dates: start: 20210201
  10. VEKLURY [Suspect]
     Active Substance: REMDESIVIR
     Indication: COVID-19
     Dosage: 100 MG, QD
     Route: 042
     Dates: start: 20210201, end: 20210204
  11. CODEIN [Concomitant]
     Active Substance: CODEINE
  12. DEXAMED [DEXAMETHASONE] [Concomitant]
  13. PLASMALYTE [Concomitant]
     Active Substance: ELECTROLYTES NOS
  14. MILK THISTLE EXTRACT [Concomitant]
     Active Substance: DIETARY SUPPLEMENT\HERBALS\MILK THISTLE

REACTIONS (1)
  - Cerebrovascular accident [Unknown]

NARRATIVE: CASE EVENT DATE: 20210204
